FAERS Safety Report 18734745 (Version 3)
Quarter: 2021Q3

REPORT INFORMATION
  Report Type: Spontaneous
  Country: US (occurrence: US)
  Receive Date: 20210113
  Receipt Date: 20210701
  Transmission Date: 20211014
  Serious: Yes (Hospitalization, Other)
  Sender: FDA-Public Use
  Company Number: US-GLAXOSMITHKLINE-US2021AMR002729

PATIENT
  Sex: Female

DRUGS (3)
  1. BENLYSTA [Suspect]
     Active Substance: BELIMUMAB
  2. BENLYSTA [Suspect]
     Active Substance: BELIMUMAB
     Indication: SYSTEMIC LUPUS ERYTHEMATOSUS
     Dosage: UNK UNK, WE
  3. BENLYSTA [Suspect]
     Active Substance: BELIMUMAB
     Indication: SYSTEMIC LUPUS ERYTHEMATOSUS
     Dosage: UNK

REACTIONS (18)
  - Renal failure [Unknown]
  - Arthralgia [Unknown]
  - Malaise [Unknown]
  - Product dose omission issue [Unknown]
  - Balance disorder [Unknown]
  - Contusion [Unknown]
  - Systemic lupus erythematosus [Unknown]
  - Skin discolouration [Unknown]
  - Blister [Unknown]
  - Peripheral swelling [Unknown]
  - Functional gastrointestinal disorder [Unknown]
  - Rash [Unknown]
  - Decreased appetite [Unknown]
  - Respiratory symptom [Unknown]
  - Platelet count decreased [Unknown]
  - Asthenia [Unknown]
  - Product administration interrupted [Unknown]
  - Pneumonia [Unknown]
